FAERS Safety Report 5902169-6 (Version None)
Quarter: 2008Q3

REPORT INFORMATION
  Report Type: 
  Country: None (occurrence: None)
  Receive Date: 20080919
  Receipt Date: 20080728
  Transmission Date: 20090109
  Serious: No
  Sender: FDA-Public Use
  Company Number: US-WYE-H05284608

PATIENT
  Age: 56 Year
  Sex: Male
  Weight: 88.08 kg

DRUGS (7)
  1. PRISTIQ [Suspect]
     Indication: DEPRESSION
     Dosage: 50 MG 1X PER 1 DAY, ORAL
     Route: 047
     Dates: start: 20080714
  2. DIOVAN [Concomitant]
  3. DILTIAZEM [Concomitant]
  4. XANAX [Concomitant]
  5. PROTONIX [Concomitant]
  6. CRESTOR [Concomitant]
  7. ALLOPURINOL [Concomitant]

REACTIONS (1)
  - BURNING SENSATION [None]
